FAERS Safety Report 7164545-6 (Version None)
Quarter: 2010Q4

REPORT INFORMATION
  Report Type: 
  Country: None (occurrence: None)
  Receive Date: 20101215
  Receipt Date: 20101201
  Transmission Date: 20110411
  Serious: Yes (Hospitalization)
  Sender: FDA-Public Use
  Company Number: US-CELGENEUS-163-21880-10111089

PATIENT
  Sex: Female
  Weight: 85.806 kg

DRUGS (9)
  1. REVLIMID [Suspect]
     Indication: MULTIPLE MYELOMA
     Route: 048
     Dates: start: 20100903, end: 20101109
  2. ATIVAN [Concomitant]
     Route: 048
  3. LASIX [Concomitant]
     Route: 048
  4. NEURONTIN [Concomitant]
     Route: 048
  5. CLONAZEPAM [Concomitant]
     Route: 048
  6. LEVOTHYROXINE SODIUM [Concomitant]
     Route: 048
  7. ASPIRIN [Concomitant]
     Route: 048
     Dates: start: 20100903
  8. RENAGEL [Concomitant]
     Route: 048
  9. DEXAMETHASONE [Concomitant]
     Route: 048
     Dates: start: 20100903

REACTIONS (2)
  - CARDIAC VALVE DISEASE [None]
  - DYSPNOEA [None]
